FAERS Safety Report 7610345-X (Version None)
Quarter: 2011Q3

REPORT INFORMATION
  Report Type: 
  Country: None (occurrence: None)
  Receive Date: 20110707
  Receipt Date: 20110624
  Transmission Date: 20111222
  Serious: Yes (Hospitalization, Other)
  Sender: FDA-Public Use
  Company Number: DSU-2011-04766

PATIENT
  Age: 75 Year
  Sex: Female

DRUGS (3)
  1. UNSPECIFIED LAXATIVES (INGREDIENTS UNSPECIFIED)(LAXATIVES) [Suspect]
     Indication: COLONOSCOPY
     Dates: start: 20100101, end: 20100101
  2. FOSAMAX [Concomitant]
  3. BENICAR [Suspect]
     Indication: HYPERTENSION
     Dosage: 20 MG (20 MG,QD),PER ORAL
     Route: 048
     Dates: start: 20090917, end: 20100801

REACTIONS (6)
  - BLOOD POTASSIUM INCREASED [None]
  - DRUG INTOLERANCE [None]
  - DEHYDRATION [None]
  - BLOOD SODIUM DECREASED [None]
  - BRONCHITIS [None]
  - SINUSITIS [None]
